FAERS Safety Report 16222961 (Version 1)
Quarter: 2019Q2

REPORT INFORMATION
  Report Type: Spontaneous
  Country: BR (occurrence: BR)
  Receive Date: 20190422
  Receipt Date: 20190422
  Transmission Date: 20190711
  Serious: Yes (Other)
  Sender: FDA-Public Use
  Company Number: BR-CELGENEUS-USA-20190406590

PATIENT
  Age: 74 Year
  Sex: Male

DRUGS (1)
  1. VIDAZA [Suspect]
     Active Substance: AZACITIDINE
     Indication: MYELODYSPLASTIC SYNDROME
     Route: 058
     Dates: start: 20180303

REACTIONS (4)
  - Confusional state [Unknown]
  - Aggression [Unknown]
  - Depression [Unknown]
  - Hydrocephalus [Unknown]

NARRATIVE: CASE EVENT DATE: 201811
